FAERS Safety Report 15967330 (Version 1)
Quarter: 2019Q1

REPORT INFORMATION
  Report Type: Spontaneous
  Country: US (occurrence: US)
  Receive Date: 20190215
  Receipt Date: 20190215
  Transmission Date: 20190418
  Serious: Yes (Other)
  Sender: FDA-Public Use
  Company Number: None

PATIENT
  Age: 46 Year
  Sex: Female
  Weight: 86.85 kg

DRUGS (2)
  1. ALPRAZOLAM. [Suspect]
     Active Substance: ALPRAZOLAM
     Indication: FIBROMYALGIA
  2. ALPRAZOLAM. [Suspect]
     Active Substance: ALPRAZOLAM
     Indication: ANXIETY

REACTIONS (16)
  - Anger [None]
  - Drug dependence [None]
  - Agitation [None]
  - Confusional state [None]
  - Mania [None]
  - Fear [None]
  - Tremor [None]
  - Panic reaction [None]
  - Decreased appetite [None]
  - Depersonalisation/derealisation disorder [None]
  - Depression [None]
  - Nausea [None]
  - Hyperhidrosis [None]
  - Palpitations [None]
  - Chest pain [None]
  - Insomnia [None]

NARRATIVE: CASE EVENT DATE: 20180801
